FAERS Safety Report 12325825 (Version 1)
Quarter: 2016Q2

REPORT INFORMATION
  Report Type: Report from Study
  Country: BR (occurrence: BR)
  Receive Date: 20160503
  Receipt Date: 20160503
  Transmission Date: 20160815
  Serious: Yes (Other)
  Sender: FDA-Public Use
  Company Number: BR-ROCHE-1706474

PATIENT
  Age: 61 Year
  Sex: Female
  Weight: 77 kg

DRUGS (6)
  1. ABLOK PLUS [Concomitant]
     Active Substance: ATENOLOL\CHLORTHALIDONE
     Indication: HYPERTENSION
     Route: 065
  2. METHOTREXATE [Concomitant]
     Active Substance: METHOTREXATE
     Indication: RHEUMATOID ARTHRITIS
     Route: 065
  3. ARAVA [Concomitant]
     Active Substance: LEFLUNOMIDE
     Route: 065
  4. SIMVASTATIN. [Concomitant]
     Active Substance: SIMVASTATIN
  5. MABTHERA [Suspect]
     Active Substance: RITUXIMAB
     Indication: RHEUMATOID ARTHRITIS
     Dosage: LAST INFUSION RECEIVED PRIOR TO SAE (SERIOUS ADVERSE EVENT): 24/APR/2015?ON 03/FEB/2016, RECEIVED LA
     Route: 042
     Dates: start: 201504
  6. PREDNISONE. [Concomitant]
     Active Substance: PREDNISONE
     Indication: RHEUMATOID ARTHRITIS
     Route: 065

REACTIONS (13)
  - Dysstasia [Unknown]
  - Urinary tract infection [Unknown]
  - Body height decreased [Not Recovered/Not Resolved]
  - Gait disturbance [Unknown]
  - Ocular hyperaemia [Unknown]
  - Immunodeficiency [Unknown]
  - Throat tightness [Unknown]
  - Eye discharge [Unknown]
  - Pain [Unknown]
  - Cough [Unknown]
  - Malaise [Not Recovered/Not Resolved]
  - Eye irritation [Unknown]
  - Urinary tract infection [Unknown]

NARRATIVE: CASE EVENT DATE: 201511
